FAERS Safety Report 5749811-0 (Version None)
Quarter: 2008Q2

REPORT INFORMATION
  Report Type: 
  Country: None (occurrence: None)
  Receive Date: 20080522
  Receipt Date: 20080522
  Transmission Date: 20081010
  Serious: Yes (Hospitalization)
  Sender: FDA-Public Use
  Company Number: None

PATIENT
  Age: 63 Year
  Sex: Male
  Weight: 65.7 kg

DRUGS (2)
  1. CAPTOPRIL [Suspect]
     Indication: HYPERTENSION
     Dosage: 12.5 MG Q8H PO
     Route: 048
  2. AMOXICILLIN [Suspect]
     Indication: INFECTION
     Dosage: 875 MG BID PO
     Route: 048

REACTIONS (4)
  - ANAPHYLACTIC SHOCK [None]
  - BLOOD PRESSURE SYSTOLIC DECREASED [None]
  - GENERALISED OEDEMA [None]
  - PRURITUS [None]
